FAERS Safety Report 8304255-2 (Version None)
Quarter: 2012Q2

REPORT INFORMATION
  Report Type: 
  Country: None (occurrence: None)
  Receive Date: 20120423
  Receipt Date: 20120420
  Transmission Date: 20120825
  Serious: Yes (Life-Threatening, Hospitalization)
  Sender: FDA-Public Use
  Company Number: PHFR2012GB002473

PATIENT
  Age: 77 Year
  Sex: Male
  Weight: 78 kg

DRUGS (9)
  1. ALBUTEROL [Concomitant]
  2. ONBREZ [Suspect]
     Indication: CHRONIC OBSTRUCTIVE PULMONARY DISEASE
     Dosage: 150 UG, QD
     Dates: start: 20120320
  3. ASPIRIN [Concomitant]
  4. TIOTROPIUM BROMIDE [Concomitant]
  5. BENDROFLUMETHIAZIDE [Concomitant]
  6. FLUOXETINE [Concomitant]
  7. NICORANDIL [Concomitant]
  8. FELODIPINE [Concomitant]
  9. SIMVASTATIN [Concomitant]

REACTIONS (7)
  - CHEST PAIN [None]
  - PLEURITIC PAIN [None]
  - PULMONARY EMBOLISM [None]
  - COUGH [None]
  - DYSPNOEA [None]
  - SPUTUM DISCOLOURED [None]
  - TREMOR [None]
